FAERS Safety Report 8514301-9 (Version None)
Quarter: 2012Q3

REPORT INFORMATION
  Report Type: 
  Country: None (occurrence: None)
  Receive Date: 20120717
  Receipt Date: 20120711
  Transmission Date: 20120928
  Serious: No
  Sender: FDA-Public Use
  Company Number: US-B.I. PHARMACEUTICALS,INC./RIDGEFIELD-2012-BP-15418BP

PATIENT
  Age: 85 Year
  Sex: Male

DRUGS (2)
  1. PRADAXA [Suspect]
  2. PRADAXA [Suspect]

REACTIONS (2)
  - NEPHROLITHIASIS [None]
  - HAEMORRHAGE URINARY TRACT [None]
